FAERS Safety Report 7019309-0 (Version None)
Quarter: 2010Q3

REPORT INFORMATION
  Report Type: 
  Country: None (occurrence: None)
  Receive Date: 20100928
  Receipt Date: 20100920
  Transmission Date: 20110219
  Serious: Yes (Hospitalization, Other)
  Sender: FDA-Public Use
  Company Number: KR-MERCK-1009USA04811

PATIENT
  Age: 44 Year
  Sex: Female

DRUGS (7)
  1. MEFOXIN [Suspect]
     Indication: LUNG INFECTION
     Route: 051
  2. CLARITHROMYCIN [Suspect]
     Indication: LUNG INFECTION
     Route: 065
  3. AMIKACIN [Suspect]
     Indication: LUNG INFECTION
     Route: 065
  4. ISONIAZID [Concomitant]
     Route: 065
  5. RIFAMPIN [Concomitant]
     Route: 065
  6. ETHAMBUTOL HYDROCHLORIDE [Concomitant]
     Route: 065
  7. PYRAZINAMIDE [Concomitant]
     Route: 065

REACTIONS (2)
  - DRUG INEFFECTIVE [None]
  - PULMONARY TUBERCULOSIS [None]
